FAERS Safety Report 7768897-5 (Version None)
Quarter: 2011Q3

REPORT INFORMATION
  Report Type: 
  Country: None (occurrence: None)
  Receive Date: 20110922
  Receipt Date: 20101216
  Transmission Date: 20111222
  Serious: No
  Sender: FDA-Public Use
  Company Number: US-ASTRAZENECA-2010SE59643

PATIENT
  Sex: Female

DRUGS (2)
  1. TOPAMAX [Suspect]
  2. SEROQUEL [Suspect]
     Route: 048
     Dates: start: 20090101

REACTIONS (1)
  - URINARY RETENTION [None]
